FAERS Safety Report 6195670-4 (Version None)
Quarter: 2009Q2

REPORT INFORMATION
  Report Type: 
  Country: None (occurrence: None)
  Receive Date: 20090519
  Receipt Date: 20090511
  Transmission Date: 20091009
  Serious: Yes (Hospitalization)
  Sender: FDA-Public Use
  Company Number: FR-BAUSCH-2009BL002192

PATIENT
  Age: 76 Year
  Sex: Male

DRUGS (1)
  1. CARTEOL LP 1% COLLYRE EN SOLUTION A LIBERATION PROLONGEE [Suspect]
     Indication: INTRAOCULAR PRESSURE INCREASED
     Route: 047
     Dates: start: 20070101

REACTIONS (10)
  - ABDOMINAL DISTENSION [None]
  - ALOPECIA [None]
  - CARDIOVASCULAR DISORDER [None]
  - DRY MOUTH [None]
  - FATIGUE [None]
  - NIGHTMARE [None]
  - PALPITATIONS [None]
  - PSORIASIS [None]
  - RESPIRATORY DISORDER [None]
  - SLEEP APNOEA SYNDROME [None]
